FAERS Safety Report 6943917-6 (Version None)
Quarter: 2010Q3

REPORT INFORMATION
  Report Type: 
  Country: None (occurrence: None)
  Receive Date: 20100826
  Receipt Date: 20100819
  Transmission Date: 20110219
  Serious: Yes (Other)
  Sender: FDA-Public Use
  Company Number: B0662447A

PATIENT
  Sex: Female

DRUGS (5)
  1. REQUIP XL [Suspect]
     Indication: PARKINSON'S DISEASE
     Dosage: 20MG PER DAY
     Route: 065
  2. SINEMET CR [Suspect]
     Indication: PRODUCT USED FOR UNKNOWN INDICATION
     Route: 065
  3. APOMORPHINE [Concomitant]
  4. REQUIP [Concomitant]
     Route: 065
  5. SINEMET [Concomitant]
     Route: 065

REACTIONS (3)
  - PAIN [None]
  - PARKINSON'S DISEASE [None]
  - WITHDRAWAL SYNDROME [None]
